FAERS Safety Report 21832248 (Version 2)
Quarter: 2023Q1

REPORT INFORMATION
  Report Type: Spontaneous
  Country: FR (occurrence: FR)
  Receive Date: 20230106
  Receipt Date: 20230112
  Transmission Date: 20230418
  Serious: Yes (Other)
  Sender: FDA-Public Use
  Company Number: FR-002147023-NVSC2022FR255904

PATIENT
  Age: 3 Year
  Weight: 15 kg

DRUGS (1)
  1. ACETAMINOPHEN [Suspect]
     Active Substance: ACETAMINOPHEN
     Indication: Pyrexia
     Dosage: 225 MG (ONE OR MORE TABLET)
     Route: 048

REACTIONS (6)
  - Foreign body in throat [Unknown]
  - Drug level increased [Unknown]
  - Transaminases increased [Recovering/Resolving]
  - Vomiting [Recovering/Resolving]
  - Accidental exposure to product by child [Unknown]
  - Accidental overdose [Unknown]
